FAERS Safety Report 4447837-0 (Version None)
Quarter: 2004Q3

REPORT INFORMATION
  Report Type: 
  Country: None (occurrence: None)
  Receive Date: 20040729
  Receipt Date: 20040217
  Transmission Date: 20050211
  Serious: Yes (Hospitalization)
  Sender: FDA-Public Use
  Company Number: ZLBIGIV/04/03/USA

PATIENT
  Age: 61 Year
  Sex: Male
  Weight: 135 kg

DRUGS (12)
  1. CARIMUNE [Suspect]
     Indication: HYPOGAMMAGLOBULINAEMIA
     Dosage: 84 G, MONTHLY, I.V.
     Route: 042
     Dates: start: 20030530, end: 20040209
  2. INSULIN [Concomitant]
  3. DIABETA [Concomitant]
  4. ZAROXYLIN (DIURETICS) [Concomitant]
  5. SINGULAIR [Concomitant]
  6. ADVAIR (ANTI-ASTHMATICS) [Concomitant]
  7. CLARITIN [Concomitant]
  8. ACCUPRIL [Concomitant]
  9. PRAVACHOL [Concomitant]
  10. LASIX [Concomitant]
  11. K-DUR 10 [Concomitant]
  12. CARDURA [Concomitant]

REACTIONS (5)
  - BLOOD CREATININE INCREASED [None]
  - FLUID RETENTION [None]
  - OLIGURIA [None]
  - RENAL FAILURE [None]
  - RENAL FAILURE ACUTE [None]
